FAERS Safety Report 10700495 (Version 1)
Quarter: 2015Q1

REPORT INFORMATION
  Report Type: Spontaneous
  Country: JP (occurrence: JP)
  Receive Date: 20150109
  Receipt Date: 20150109
  Transmission Date: 20150721
  Serious: Yes (Death, Other)
  Sender: FDA-Public Use
  Company Number: JP-CELGENE-JPN-2015010921

PATIENT
  Age: 20 Year
  Sex: Female

DRUGS (2)
  1. GEMTUZUMAB OZOGAMICIN [Suspect]
     Active Substance: GEMTUZUMAB OZOGAMICIN
     Indication: ACUTE MYELOID LEUKAEMIA
     Route: 041
  2. VIDAZA [Suspect]
     Active Substance: AZACITIDINE
     Indication: ACUTE MYELOID LEUKAEMIA
     Dosage: 30 MILLIGRAM/SQ. METER
     Route: 041

REACTIONS (6)
  - Cytomegalovirus colitis [Unknown]
  - Neutropenia [Unknown]
  - Anaemia [Unknown]
  - Genital herpes [Unknown]
  - Acute myeloid leukaemia [Fatal]
  - Thrombocytopenia [Unknown]
